FAERS Safety Report 11395292 (Version 1)
Quarter: 2015Q3

REPORT INFORMATION
  Report Type: Spontaneous
  Country: US (occurrence: None)
  Receive Date: 20150817
  Receipt Date: 20150817
  Transmission Date: 20151125
  Serious: No
  Sender: FDA-Public Use
  Company Number: None

PATIENT
  Age: 48 Year
  Sex: Female
  Weight: 68.04 kg

DRUGS (8)
  1. PREMARIN [Concomitant]
     Active Substance: ESTROGENS, CONJUGATED
  2. CALCIUM [Concomitant]
     Active Substance: CALCIUM
  3. NORCO [Suspect]
     Active Substance: ACETAMINOPHEN\HYDROCODONE BITARTRATE
     Indication: SPONDYLOARTHROPATHY
     Route: 048
     Dates: start: 20150807, end: 20150815
  4. MULTIVITAMIN [Concomitant]
     Active Substance: VITAMINS
  5. PREDNISONE. [Concomitant]
     Active Substance: PREDNISONE
  6. VITAMIN D [Concomitant]
     Active Substance: CHOLECALCIFEROL
  7. ENBREL [Concomitant]
     Active Substance: ETANERCEPT
  8. CLONOPIN [Concomitant]
     Active Substance: CLONAZEPAM

REACTIONS (5)
  - Product formulation issue [None]
  - Heart rate increased [None]
  - Product substitution issue [None]
  - Product quality issue [None]
  - Drug ineffective [None]

NARRATIVE: CASE EVENT DATE: 20150815
